FAERS Safety Report 6414734-0 (Version None)
Quarter: 2009Q4

REPORT INFORMATION
  Report Type: 
  Country: None (occurrence: None)
  Receive Date: 20091026
  Receipt Date: 20091026
  Transmission Date: 20100525
  Serious: No
  Sender: FDA-Public Use
  Company Number: None

PATIENT
  Age: 2 Year
  Sex: Female
  Weight: 16.3295 kg

DRUGS (2)
  1. IBUPROFEN [Suspect]
     Indication: PYREXIA
     Dosage: 1 OZ ONCE PO
     Route: 048
     Dates: start: 20091025, end: 20091025
  2. IBUPROFEN [Suspect]
     Indication: TEETHING
     Dosage: 1 OZ ONCE PO
     Route: 048
     Dates: start: 20091025, end: 20091025

REACTIONS (2)
  - ACCIDENTAL DRUG INTAKE BY CHILD [None]
  - FAILURE OF CHILD RESISTANT MECHANISM FOR PHARMACEUTICAL PRODUCT [None]
